FAERS Safety Report 12072976 (Version 1)
Quarter: 2016Q1

REPORT INFORMATION
  Report Type: Spontaneous
  Country: US (occurrence: US)
  Receive Date: 20160212
  Receipt Date: 20160212
  Transmission Date: 20160526
  Serious: Yes (Hospitalization, Other)
  Sender: FDA-Public Use
  Company Number: US-SMITH AND NEPHEW, INC-2016SMT00099

PATIENT
  Age: 67 Year
  Sex: Male
  Weight: 151.93 kg

DRUGS (1)
  1. REGRANEX [Suspect]
     Active Substance: BECAPLERMIN
     Indication: TOE AMPUTATION
     Dosage: UNK, 1X/DAY
     Route: 061
     Dates: start: 201512

REACTIONS (4)
  - Off label use [Unknown]
  - Incorrect drug administration duration [Unknown]
  - Skin operation [Unknown]
  - Staphylococcal infection [Unknown]

NARRATIVE: CASE EVENT DATE: 201512
